FAERS Safety Report 11618614 (Version 1)
Quarter: 2015Q4

REPORT INFORMATION
  Report Type: Spontaneous
  Country: US (occurrence: US)
  Receive Date: 20151012
  Receipt Date: 20151012
  Transmission Date: 20160304
  Serious: No
  Sender: FDA-Public Use
  Company Number: US-GLENMARK PHARMACEUTICALS INC, USA.-2015GMK014925

PATIENT
  Age: 36 Year
  Sex: Female

DRUGS (6)
  1. DULOXETINE. [Suspect]
     Active Substance: DULOXETINE
     Indication: NEURALGIA
     Dosage: UNK
  2. OXYCODONE [Suspect]
     Active Substance: OXYCODONE
     Indication: NEURALGIA
     Dosage: UNK
  3. HYDROMORPHONE [Suspect]
     Active Substance: HYDROMORPHONE
     Indication: NEURALGIA
     Dosage: UNK
  4. GABAPENTIN. [Suspect]
     Active Substance: GABAPENTIN
     Indication: NEURALGIA
     Dosage: UNK
  5. HYDROMORPHONE [Suspect]
     Active Substance: HYDROMORPHONE
     Dosage: UNK
     Route: 051
  6. LIDOCAINE. [Suspect]
     Active Substance: LIDOCAINE
     Indication: NEURALGIA
     Dosage: UNK

REACTIONS (2)
  - Off label use [Unknown]
  - Drug ineffective [Unknown]
